FAERS Safety Report 23522002 (Version 2)
Quarter: 2024Q1

REPORT INFORMATION
  Report Type: Spontaneous
  Country: SA (occurrence: SA)
  Receive Date: 20240214
  Receipt Date: 20240221
  Transmission Date: 20240409
  Serious: Yes (Other)
  Sender: FDA-Public Use
  Company Number: SA-SA-2024SA050068

PATIENT
  Age: 62 Year
  Sex: Female

DRUGS (7)
  1. OXALIPLATIN [Suspect]
     Active Substance: OXALIPLATIN
     Indication: Colon cancer
     Dosage: NEOADJUVANT FOLFOX
  2. OXALIPLATIN [Suspect]
     Active Substance: OXALIPLATIN
     Dosage: ADJUVANT XELOX CHEMOTHERAPY
  3. LEUCOVORIN CALCIUM [Suspect]
     Active Substance: LEUCOVORIN CALCIUM
     Indication: Colon cancer
  4. FLUOROURACIL [Suspect]
     Active Substance: FLUOROURACIL
     Indication: Colon cancer
  5. CAPECITABINE [Suspect]
     Active Substance: CAPECITABINE
     Indication: Colon cancer
  6. IRINOTECAN [Suspect]
     Active Substance: IRINOTECAN
     Indication: Colon cancer
  7. PANITUMUMAB [Suspect]
     Active Substance: PANITUMUMAB
     Indication: Colon cancer

REACTIONS (2)
  - Dilated cardiomyopathy [Recovering/Resolving]
  - Cardiotoxicity [Recovering/Resolving]
